FAERS Safety Report 6969205-X (Version None)
Quarter: 2010Q3

REPORT INFORMATION
  Report Type: 
  Country: None (occurrence: None)
  Receive Date: 20100907
  Receipt Date: 20100906
  Transmission Date: 20110219
  Serious: Yes (Death, Other)
  Sender: FDA-Public Use
  Company Number: PHHY2010CH58447

PATIENT
  Age: 99 Year
  Sex: Female

DRUGS (1)
  1. LEPONEX [Suspect]
     Dosage: 50 MG, ONE DOSE
     Route: 048
     Dates: start: 20080720

REACTIONS (8)
  - BLOOD PRESSURE INCREASED [None]
  - CARDIAC FAILURE CONGESTIVE [None]
  - DRUG ADMINISTRATION ERROR [None]
  - FOREIGN BODY ASPIRATION [None]
  - HEART RATE INCREASED [None]
  - HYPOPNOEA [None]
  - LOSS OF CONSCIOUSNESS [None]
  - PULMONARY OEDEMA [None]
